FAERS Safety Report 12477628 (Version 1)
Quarter: 2016Q2

REPORT INFORMATION
  Report Type: Spontaneous
  Country: US (occurrence: US)
  Receive Date: 20160617
  Receipt Date: 20160617
  Transmission Date: 20160815
  Serious: No
  Sender: FDA-Public Use
  Company Number: US-BAYER-2016-115520

PATIENT
  Age: 64 Year
  Sex: Male
  Weight: 73.47 kg

DRUGS (1)
  1. ALEVE [Suspect]
     Active Substance: NAPROXEN SODIUM
     Indication: PAIN IN EXTREMITY
     Dosage: 2 DF, QD WITH A FULL MEAL AND FULL GLASS OF WATER
     Route: 048
     Dates: start: 2015, end: 20160605

REACTIONS (4)
  - Blood pressure increased [Unknown]
  - Circumstance or information capable of leading to medication error [None]
  - Product use issue [None]
  - Product use issue [None]

NARRATIVE: CASE EVENT DATE: 201601
